FAERS Safety Report 5792973-X (Version None)
Quarter: 2008Q2

REPORT INFORMATION
  Report Type: 
  Country: None (occurrence: None)
  Receive Date: 20080627
  Receipt Date: 20080616
  Transmission Date: 20081010
  Serious: Yes (Hospitalization)
  Sender: FDA-Public Use
  Company Number: US-JNJFOC-20080604054

PATIENT
  Sex: Male
  Weight: 52.9 kg

DRUGS (4)
  1. REMICADE [Suspect]
     Indication: COLITIS
     Route: 042
  2. PREDNISONE [Concomitant]
  3. SULFASALAZINE [Concomitant]
  4. METRONIDAZOLE HCL [Concomitant]

REACTIONS (1)
  - COLITIS [None]
